FAERS Safety Report 9719187 (Version 1)
Quarter: 2013Q4

REPORT INFORMATION
  Report Type: Spontaneous
  Country: KR (occurrence: KR)
  Receive Date: 20131127
  Receipt Date: 20131127
  Transmission Date: 20140711
  Serious: Yes (Hospitalization)
  Sender: FDA-Public Use
  Company Number: PHHY2013KR134146

PATIENT
  Age: 36 Year
  Sex: Female

DRUGS (3)
  1. PREDNISOLONE [Suspect]
     Indication: SYSTEMIC LUPUS ERYTHEMATOSUS
     Dosage: 10 MG, UNK
     Route: 048
  2. PREDNISOLONE [Suspect]
     Dosage: 30 MG, UNK
     Route: 048
  3. ANTIHYPERTENSIVES [Suspect]

REACTIONS (6)
  - Uterine rupture [Unknown]
  - Abdominal pain [Unknown]
  - Syncope [Unknown]
  - Pre-eclampsia [Unknown]
  - Systemic lupus erythematosus [Unknown]
  - Maternal exposure during pregnancy [Unknown]
